FAERS Safety Report 9430244 (Version 1)
Quarter: 2013Q3

REPORT INFORMATION
  Report Type: Spontaneous
  Country: FR (occurrence: FR)
  Receive Date: 20130730
  Receipt Date: 20130730
  Transmission Date: 20140515
  Serious: Yes (Hospitalization, Other)
  Sender: FDA-Public Use
  Company Number: FR-JNJFOC-20130707329

PATIENT
  Age: 72 Year
  Sex: Male
  Weight: 62.6 kg

DRUGS (11)
  1. ZYTIGA [Suspect]
     Indication: PROSTATE CANCER
     Dosage: 250 MG X 4 TABLETS
     Route: 048
     Dates: start: 20120719, end: 20130710
  2. TAHOR [Concomitant]
     Route: 065
  3. NATECAL [Concomitant]
     Route: 065
  4. ZOMETA [Concomitant]
     Route: 065
  5. XGEVA [Concomitant]
     Indication: PRODUCT USED FOR UNKNOWN INDICATION
     Route: 058
  6. ENANTONE [Concomitant]
     Indication: PROSTATIC SPECIFIC ANTIGEN
     Route: 065
  7. CARDENSIEL [Concomitant]
     Route: 065
  8. TRIATEC [Concomitant]
     Route: 065
  9. PLAVIX [Concomitant]
     Route: 065
  10. STAGID [Concomitant]
     Route: 065
  11. BISOPROLOL [Concomitant]
     Route: 065

REACTIONS (3)
  - Cardiac failure [Recovering/Resolving]
  - Glaucoma [Unknown]
  - Prostatic specific antigen increased [Unknown]
